FAERS Safety Report 21359390 (Version 1)
Quarter: 2022Q3

REPORT INFORMATION
  Report Type: Spontaneous
  Country: US (occurrence: None)
  Receive Date: 20220920
  Receipt Date: 20220920
  Transmission Date: 20221027
  Serious: Yes (Other)
  Sender: FDA-Public Use
  Company Number: None

PATIENT
  Age: 32 Year
  Sex: Female
  Weight: 67.05 kg

DRUGS (5)
  1. KETOCONAZOLE [Suspect]
     Active Substance: KETOCONAZOLE
     Indication: Dandruff
     Dosage: OTHER QUANTITY : 1 BOTTLE;?OTHER FREQUENCY : ONCE 3 DAYS;?
     Route: 061
     Dates: start: 20220901, end: 20220902
  2. VITAMIN C [Concomitant]
     Active Substance: ASCORBIC ACID
  3. ZINC [Concomitant]
     Active Substance: ZINC
  4. QUERCETIN [Concomitant]
     Active Substance: QUERCETIN
  5. D3/K2 [Concomitant]

REACTIONS (2)
  - Alopecia [None]
  - Skin irritation [None]

NARRATIVE: CASE EVENT DATE: 20220902
